FAERS Safety Report 9596314 (Version 1)
Quarter: 2013Q4

REPORT INFORMATION
  Report Type: Spontaneous
  Country: FR (occurrence: FR)
  Receive Date: 20131004
  Receipt Date: 20131004
  Transmission Date: 20140711
  Serious: Yes (Death, Hospitalization, Other)
  Sender: FDA-Public Use
  Company Number: FR-PFIZER INC-2013281686

PATIENT
  Age: 39 Year
  Sex: Female

DRUGS (2)
  1. XANAX [Suspect]
     Dosage: 0.25 MG, UNK
     Route: 048
     Dates: start: 20120608
  2. XEROQUEL [Suspect]
     Dosage: 300 MG, UNK
     Route: 048
     Dates: start: 20120608, end: 20120621

REACTIONS (5)
  - Completed suicide [Fatal]
  - Anxiety [Unknown]
  - Suicidal ideation [Unknown]
  - Hallucination, auditory [Unknown]
  - Persecutory delusion [Unknown]
